FAERS Safety Report 16146187 (Version 1)
Quarter: 2019Q2

REPORT INFORMATION
  Report Type: Report from Study
  Country: US (occurrence: US)
  Receive Date: 20190402
  Receipt Date: 20190402
  Transmission Date: 20190711
  Serious: Yes (Death, Other)
  Sender: FDA-Public Use
  Company Number: US-ROCHE-2292032

PATIENT

DRUGS (2)
  1. ALTEPLASE. [Suspect]
     Active Substance: ALTEPLASE
     Dosage: 0.9 MG/KG; 90 MG MAXIMUM; 10% BOLUS FOLLOWED BY 90% INTRAVENOUS INFUSION OVER 60 MIN
     Route: 042
  2. ALTEPLASE. [Suspect]
     Active Substance: ALTEPLASE
     Indication: ISCHAEMIC STROKE
     Dosage: 0.9 MG/KG; 90 MG MAXIMUM; 10% BOLUS FOLLOWED BY 90% INTRAVENOUS INFUSION OVER 60 MIN
     Route: 040

REACTIONS (12)
  - Headache [Unknown]
  - Atrial fibrillation [Unknown]
  - Brain oedema [Unknown]
  - Brain midline shift [Unknown]
  - Pneumonia [Unknown]
  - Pneumonia aspiration [Unknown]
  - Haemorrhage intracranial [Unknown]
  - Death [Fatal]
  - Brain herniation [Unknown]
  - Pyrexia [Unknown]
  - Nausea [Unknown]
  - Constipation [Unknown]
